FAERS Safety Report 13850266 (Version 1)
Quarter: 2017Q3

REPORT INFORMATION
  Report Type: Spontaneous
  Country: CA (occurrence: CA)
  Receive Date: 20170809
  Receipt Date: 20170809
  Transmission Date: 20171127
  Serious: Yes (Death)
  Sender: FDA-Public Use
  Company Number: CA-PFIZER INC-2017194027

PATIENT
  Age: 52 Year
  Sex: Female
  Weight: 60.32 kg

DRUGS (7)
  1. POTASSIUM [Concomitant]
     Active Substance: POTASSIUM
  2. CARIPUL [Concomitant]
     Active Substance: EPOPROSTENOL
  3. PANTOPRAZOLE [Concomitant]
     Active Substance: PANTOPRAZOLE
  4. TRACLEER [Concomitant]
     Active Substance: BOSENTAN
  5. REVATIO [Suspect]
     Active Substance: SILDENAFIL CITRATE
     Indication: PULMONARY ARTERIAL HYPERTENSION
     Dosage: 20 MG, 3X/DAY
     Route: 048
     Dates: start: 20161011
  6. LASIX [Concomitant]
     Active Substance: FUROSEMIDE
  7. SALBUTAMOL [Concomitant]
     Active Substance: ALBUTEROL

REACTIONS (6)
  - Headache [Not Recovered/Not Resolved]
  - Nausea [Unknown]
  - Diarrhoea [Not Recovered/Not Resolved]
  - Death [Fatal]
  - Lethargy [Not Recovered/Not Resolved]
  - Flushing [Not Recovered/Not Resolved]

NARRATIVE: CASE EVENT DATE: 20170501
